FAERS Safety Report 19917673 (Version 1)
Quarter: 2021Q4

REPORT INFORMATION
  Report Type: Spontaneous
  Country: US (occurrence: US)
  Receive Date: 20211005
  Receipt Date: 20211005
  Transmission Date: 20220303
  Serious: Yes (Hospitalization, Other)
  Sender: FDA-Public Use
  Company Number: US-MLMSERVICE-20210920-3116047-1

PATIENT
  Age: 59 Year
  Sex: Female

DRUGS (9)
  1. METHOTREXATE [Suspect]
     Active Substance: METHOTREXATE
     Indication: Acute myeloid leukaemia
     Route: 037
  2. CYTARABINE [Concomitant]
     Active Substance: CYTARABINE
     Indication: Acute myeloid leukaemia
     Route: 037
  3. ACYCLOVIR [Concomitant]
     Active Substance: ACYCLOVIR
     Indication: Prophylaxis
     Dosage: UNKNOWN
     Route: 065
  4. TACROLIMUS [Concomitant]
     Active Substance: TACROLIMUS
     Indication: Graft versus host disease in skin
     Dosage: UNKNOWN
     Route: 065
  5. HYDROCORTISONE [Concomitant]
     Active Substance: HYDROCORTISONE
     Indication: Acute myeloid leukaemia
     Route: 037
  6. FLUCONAZOLE [Concomitant]
     Active Substance: FLUCONAZOLE
     Indication: Prophylaxis
     Dosage: UNKNOWN
     Route: 065
  7. SULFAMETHOXAZOLE\TRIMETHOPRIM [Concomitant]
     Active Substance: SULFAMETHOXAZOLE\TRIMETHOPRIM
     Indication: Prophylaxis
     Dosage: UNKNOWN
     Route: 065
  8. GILTERITINIB [Concomitant]
     Active Substance: GILTERITINIB
     Indication: Acute myeloid leukaemia
     Dosage: UNKNOWN
     Route: 065
  9. DEXAMETHASONE [Concomitant]
     Active Substance: DEXAMETHASONE
     Indication: Graft versus host disease in skin
     Dosage: UNKNOWN
     Route: 065

REACTIONS (9)
  - Strabismus [Recovering/Resolving]
  - Neurotoxicity [Recovering/Resolving]
  - Diplopia [Recovering/Resolving]
  - Toxicity to various agents [Recovering/Resolving]
  - Dysarthria [Recovering/Resolving]
  - Toxic leukoencephalopathy [Recovering/Resolving]
  - Facial paralysis [Recovering/Resolving]
  - Tremor [Recovering/Resolving]
  - Muscular weakness [Recovering/Resolving]
